FAERS Safety Report 13721371 (Version 1)
Quarter: 2017Q3

REPORT INFORMATION
  Report Type: Spontaneous
  Country: US (occurrence: US)
  Receive Date: 20170705
  Receipt Date: 20170705
  Transmission Date: 20171127
  Serious: Yes (Other)
  Sender: FDA-Public Use
  Company Number: None

PATIENT
  Sex: Male
  Weight: 103.5 kg

DRUGS (2)
  1. CYMBALTA [Suspect]
     Active Substance: DULOXETINE HYDROCHLORIDE
     Indication: FIBROMYALGIA
     Dosage: ?          OTHER STRENGTH:MG;QUANTITY:1 CAPSULE(S);?
     Route: 048
     Dates: start: 20100401, end: 20170101
  2. CYMBALTA [Suspect]
     Active Substance: DULOXETINE HYDROCHLORIDE

REACTIONS (7)
  - Panic attack [None]
  - Somnambulism [None]
  - Cognitive disorder [None]
  - Anxiety [None]
  - Sleep apnoea syndrome [None]
  - Withdrawal syndrome [None]
  - Paraesthesia [None]
